FAERS Safety Report 20181864 (Version 2)
Quarter: 2022Q1

REPORT INFORMATION
  Report Type: Spontaneous
  Country: US (occurrence: US)
  Receive Date: 20211214
  Receipt Date: 20220215
  Transmission Date: 20220424
  Serious: No
  Sender: FDA-Public Use
  Company Number: US-BAYER-2021A265144

PATIENT
  Age: 53 Year
  Sex: Female

DRUGS (2)
  1. ACARBOSE [Suspect]
     Active Substance: ACARBOSE
     Indication: Dumping syndrome
  2. ACARBOSE [Suspect]
     Active Substance: ACARBOSE
     Indication: Dumping syndrome

REACTIONS (3)
  - Gastrointestinal disorder [None]
  - Drug ineffective [None]
  - Off label use [None]
